FAERS Safety Report 15357597 (Version 4)
Quarter: 2022Q3

REPORT INFORMATION
  Report Type: Spontaneous
  Country: US (occurrence: None)
  Receive Date: 20180906
  Receipt Date: 20220818
  Transmission Date: 20221027
  Serious: Yes (Other)
  Sender: FDA-Public Use
  Company Number: 2018SF09513

PATIENT
  Age: 21839 Day
  Sex: Female
  Weight: 88.5 kg

DRUGS (54)
  1. NEXIUM [Suspect]
     Active Substance: ESOMEPRAZOLE MAGNESIUM
     Indication: Dyspepsia
     Route: 048
  2. NEXIUM 24HR [Suspect]
     Active Substance: ESOMEPRAZOLE MAGNESIUM
     Indication: Dyspepsia
     Route: 048
  3. DEXILANT [Suspect]
     Active Substance: DEXLANSOPRAZOLE
     Indication: Dyspepsia
     Dosage: TAKE 1 CAPSULE ONCE A DAY
     Route: 048
     Dates: start: 20100817
  4. DEXILANT [Suspect]
     Active Substance: DEXLANSOPRAZOLE
     Indication: Dyspepsia
     Route: 065
     Dates: start: 2010
  5. DEXILANT [Suspect]
     Active Substance: DEXLANSOPRAZOLE
     Indication: Dyspepsia
     Route: 065
     Dates: start: 20180628
  6. PREVACID [Suspect]
     Active Substance: LANSOPRAZOLE
     Indication: Dyspepsia
     Route: 065
     Dates: start: 20060824, end: 2010
  7. PREVACID [Suspect]
     Active Substance: LANSOPRAZOLE
     Indication: Dyspepsia
     Dosage: GENERIC LANSOPRAZOLE
     Route: 065
     Dates: start: 2010
  8. PREVACID [Suspect]
     Active Substance: LANSOPRAZOLE
     Indication: Dyspepsia
     Route: 065
     Dates: start: 2006, end: 2010
  9. PANTOPRAZOLE [Suspect]
     Active Substance: PANTOPRAZOLE
     Indication: Dyspepsia
     Route: 065
     Dates: start: 20130801, end: 2015
  10. PANTOPRAZOLE [Suspect]
     Active Substance: PANTOPRAZOLE
     Indication: Dyspepsia
     Route: 065
     Dates: start: 2013, end: 2015
  11. OXYCODONE [Concomitant]
     Active Substance: OXYCODONE
     Indication: Pain
     Dates: start: 2007, end: 2013
  12. BUSPIRONE [Concomitant]
     Active Substance: BUSPIRONE HYDROCHLORIDE
     Indication: Anxiety
     Dates: start: 2006, end: 2010
  13. PROPRANOLOL [Concomitant]
     Active Substance: PROPRANOLOL HYDROCHLORIDE
     Indication: Hypertension
     Dates: start: 2010
  14. LYRICA [Concomitant]
     Active Substance: PREGABALIN
     Indication: Pain
     Dates: start: 2009, end: 2010
  15. PROVENTIL [Concomitant]
     Active Substance: ALBUTEROL
     Indication: Asthma
     Dates: start: 2010, end: 2013
  16. PROVENTIL [Concomitant]
     Active Substance: ALBUTEROL
     Indication: Cough
     Dates: start: 2010, end: 2013
  17. FLOVENT [Concomitant]
     Active Substance: FLUTICASONE PROPIONATE
     Dates: start: 2006, end: 2010
  18. ALBUTEROL [Concomitant]
     Active Substance: ALBUTEROL
     Indication: Cough
     Dates: start: 2011, end: 2016
  19. ALBUTEROL [Concomitant]
     Active Substance: ALBUTEROL
     Indication: Asthma
     Dates: start: 2011, end: 2016
  20. GABAPENTIN [Concomitant]
     Active Substance: GABAPENTIN
     Indication: Pain
     Dates: start: 2016
  21. SERTRALINE [Concomitant]
     Active Substance: SERTRALINE HYDROCHLORIDE
     Indication: Anxiety
     Dates: start: 2006, end: 2016
  22. CRESTOR [Concomitant]
     Active Substance: ROSUVASTATIN CALCIUM
     Indication: Blood cholesterol increased
     Dates: start: 2016
  23. TRAMADOL [Concomitant]
     Active Substance: TRAMADOL
     Indication: Pain
     Dates: start: 2007, end: 2013
  24. TOPIRAMATE [Concomitant]
     Active Substance: TOPIRAMATE
     Indication: Pain
     Dates: start: 2014
  25. VITAMIN D3 [Concomitant]
     Active Substance: CHOLECALCIFEROL
     Indication: Renal disorder
     Dates: start: 2016
  26. IBUPROFEN [Concomitant]
     Active Substance: IBUPROFEN
     Indication: Pain
     Dates: start: 2014
  27. NAPROXEN [Concomitant]
     Active Substance: NAPROXEN
     Indication: Pain
     Dates: start: 2010
  28. OXAPROZIN [Concomitant]
     Active Substance: OXAPROZIN
     Indication: Pain
     Dates: start: 2009, end: 2016
  29. RANITIDINE [Concomitant]
     Active Substance: RANITIDINE
  30. DAYPRO [Concomitant]
     Active Substance: OXAPROZIN
     Dosage: 1-2 TIMES A WEE FOR 3-4 YEARS.
  31. PATADAY OPHTHALMIC SOLUTION [Concomitant]
     Dosage: TAKE 1 DROP ONCE A DAY
     Dates: start: 20150219
  32. SINGULAIR ORAL TABLET [Concomitant]
     Dosage: TAKE 1 TABLET AT NIGHT.
     Route: 048
     Dates: start: 20150219
  33. REQUIP [Concomitant]
     Active Substance: ROPINIROLE HYDROCHLORIDE
     Dosage: TAKE 1 TABLET EVERY NIGHT AT BEDTIME.
     Route: 048
     Dates: start: 20151125
  34. MECLIZINE [Concomitant]
     Active Substance: MECLIZINE HYDROCHLORIDE
     Dosage: TAKE 1 TABLET EVERYSIX HOURS AS NEEDED.
     Route: 048
     Dates: start: 20150326
  35. NASONEX [Concomitant]
     Active Substance: MOMETASONE FUROATE
     Route: 045
     Dates: start: 20150219
  36. ZOLOFT [Concomitant]
     Active Substance: SERTRALINE HYDROCHLORIDE
     Dosage: TAKE TWO TABLETS ONCE A DAY
     Route: 048
     Dates: start: 20150219
  37. RENOVA EXTERNAL CREAM [Concomitant]
     Dates: start: 20150219
  38. CHOLECALCIFEROL [Concomitant]
     Active Substance: CHOLECALCIFEROL
     Dates: start: 20150219
  39. HYOSCYAMINE [Concomitant]
     Active Substance: HYOSCYAMINE
  40. MONTELUKAST [Concomitant]
     Active Substance: MONTELUKAST SODIUM
  41. PRAVASTATIN [Concomitant]
     Active Substance: PRAVASTATIN
  42. HYDROMORPHONE [Concomitant]
     Active Substance: HYDROMORPHONE
  43. PENICILLIN G [Concomitant]
     Active Substance: PENICILLIN G
  44. SUMATRIPTAN [Concomitant]
     Active Substance: SUMATRIPTAN
  45. CLARITHROMYCIN [Concomitant]
     Active Substance: CLARITHROMYCIN
     Indication: Dyspepsia
     Route: 065
     Dates: start: 2013, end: 2015
  46. CODIEINE [Concomitant]
     Indication: Dyspepsia
     Route: 065
     Dates: start: 2013, end: 2015
  47. MIDAZOLAM [Concomitant]
     Active Substance: MIDAZOLAM
  48. LABETALOL [Concomitant]
     Active Substance: LABETALOL\LABETALOL HYDROCHLORIDE
  49. HYDROMORPHONE [Concomitant]
     Active Substance: HYDROMORPHONE
  50. DIPHENHYDRAMINE [Concomitant]
     Active Substance: DIPHENHYDRAMINE
  51. CLONAZEPAM [Concomitant]
     Active Substance: CLONAZEPAM
  52. AZITHROMYCIN [Concomitant]
     Active Substance: AZITHROMYCIN
  53. LEVOTHYROXINE [Concomitant]
     Active Substance: LEVOTHYROXINE
  54. ALBUTEROL [Concomitant]
     Active Substance: ALBUTEROL

REACTIONS (5)
  - Chronic kidney disease [Not Recovered/Not Resolved]
  - Renal failure [Unknown]
  - Acute kidney injury [Unknown]
  - Tubulointerstitial nephritis [Unknown]
  - Renal impairment [Unknown]

NARRATIVE: CASE EVENT DATE: 20131118
